FAERS Safety Report 4752307-6 (Version None)
Quarter: 2005Q3

REPORT INFORMATION
  Report Type: 
  Country: None (occurrence: None)
  Receive Date: 20050825
  Receipt Date: 20050823
  Transmission Date: 20060218
  Serious: Yes (Hospitalization)
  Sender: FDA-Public Use
  Company Number: US-GLAXOSMITHKLINE-A0571439A

PATIENT
  Age: 74 Year
  Sex: Male

DRUGS (2)
  1. LANOXIN [Suspect]
     Indication: ATRIAL FIBRILLATION
     Route: 048
     Dates: start: 19900101, end: 20030101
  2. COUMADIN [Concomitant]

REACTIONS (4)
  - GYNAECOMASTIA [None]
  - HIP SURGERY [None]
  - HYPERTROPHY BREAST [None]
  - KNEE OPERATION [None]
